FAERS Safety Report 18628428 (Version 2)
Quarter: 2021Q1

REPORT INFORMATION
  Report Type: Spontaneous
  Country: US (occurrence: US)
  Receive Date: 20201217
  Receipt Date: 20210217
  Transmission Date: 20210419
  Serious: Yes (Other)
  Sender: FDA-Public Use
  Company Number: US-TAKEDA-2020TUS057983

PATIENT
  Sex: Female
  Weight: 106.12 kg

DRUGS (15)
  1. LMX4 [Concomitant]
     Active Substance: LIDOCAINE
  2. EPINEPHRINE. [Concomitant]
     Active Substance: EPINEPHRINE
  3. LOSARTAN. [Concomitant]
     Active Substance: LOSARTAN
  4. CYANOCOBALAMIN. [Concomitant]
     Active Substance: CYANOCOBALAMIN
  5. HCTZ [Concomitant]
     Active Substance: HYDROCHLOROTHIAZIDE
  6. GABAPENTIN. [Concomitant]
     Active Substance: GABAPENTIN
  7. ALBUTEROL [SALBUTAMOL] [Concomitant]
     Active Substance: ALBUTEROL
  8. DIPHENHYDRAMINE. [Concomitant]
     Active Substance: DIPHENHYDRAMINE
  9. ALPRAZOLAM. [Concomitant]
     Active Substance: ALPRAZOLAM
  10. CUVITRU [Suspect]
     Active Substance: HUMAN IMMUNOGLOBULIN G
     Indication: IMMUNODEFICIENCY COMMON VARIABLE
     Dosage: 16 GRAM, Q2WEEKS
     Route: 058
     Dates: start: 20200903
  11. PREDNISONE. [Concomitant]
     Active Substance: PREDNISONE
  12. ACETAMINOPHEN. [Concomitant]
     Active Substance: ACETAMINOPHEN
  13. PROTONIX [OMEPRAZOLE] [Concomitant]
     Active Substance: OMEPRAZOLE
  14. VITAMIN D2 [Concomitant]
     Active Substance: ERGOCALCIFEROL
  15. SERTRALINE [Concomitant]
     Active Substance: SERTRALINE HYDROCHLORIDE

REACTIONS (3)
  - Fungal oesophagitis [Unknown]
  - Pneumonia [Unknown]
  - Upper respiratory tract infection [Unknown]
